FAERS Safety Report 6998445-9 (Version None)
Quarter: 2010Q3

REPORT INFORMATION
  Report Type: 
  Country: None (occurrence: None)
  Receive Date: 20100920
  Receipt Date: 20100910
  Transmission Date: 20110219
  Serious: Yes (Hospitalization, Other)
  Sender: FDA-Public Use
  Company Number: JP-BAYER-200914365BYL

PATIENT
  Age: 73 Year
  Sex: Male
  Weight: 54 kg

DRUGS (7)
  1. NEXAVAR [Suspect]
     Indication: HEPATIC NEOPLASM MALIGNANT
     Dosage: TOTAL DAILY DOSE: 800 MG  UNIT DOSE: 200 MG
     Route: 048
     Dates: start: 20090817, end: 20091109
  2. FLUITRAN [Concomitant]
     Dosage: SINCE BEFORE ADMINISTRATION
     Route: 048
  3. NORVASC [Concomitant]
     Dosage: SINCE BEFORE ADMINISTRATION
     Route: 048
  4. TAKEPRON [Concomitant]
     Dosage: SINCE BEFORE ADMINISTRATION
     Route: 048
  5. AMARYL [Concomitant]
     Dosage: SINCE BEFORE ADMINISTRATION
     Route: 048
  6. ULCERLMIN [Concomitant]
     Dosage: SINCE BEFORE ADMINISTRATION
     Route: 048
  7. GLAKAY [Concomitant]
     Dosage: SINCE BEFORE ADMINISTRATION
     Route: 048

REACTIONS (9)
  - ANAEMIA [None]
  - BLOOD AMYLASE INCREASED [None]
  - BLOOD PHOSPHORUS DECREASED [None]
  - COLITIS ISCHAEMIC [None]
  - DIARRHOEA [None]
  - HYPOALBUMINAEMIA [None]
  - LIPASE INCREASED [None]
  - MELAENA [None]
  - PANCYTOPENIA [None]
